FAERS Safety Report 8221813-4 (Version None)
Quarter: 2012Q1

REPORT INFORMATION
  Report Type: 
  Country: None (occurrence: None)
  Receive Date: 20120314
  Receipt Date: 20120305
  Transmission Date: 20120608
  Serious: No
  Sender: FDA-Public Use
  Company Number: 2012SP002797

PATIENT
  Sex: Female

DRUGS (1)
  1. SAPHRIS [Suspect]
     Indication: TACHYPHRENIA
     Dosage: 5 MG;HS;SL
     Route: 060

REACTIONS (2)
  - RASH [None]
  - OFF LABEL USE [None]
